FAERS Safety Report 9690749 (Version 1)
Quarter: 2013Q4

REPORT INFORMATION
  Report Type: Spontaneous
  Country: US (occurrence: None)
  Receive Date: 20131114
  Receipt Date: 20131114
  Transmission Date: 20140711
  Serious: No
  Sender: FDA-Public Use
  Company Number: None

PATIENT
  Age: 33 Year
  Sex: Female
  Weight: 122.47 kg

DRUGS (1)
  1. BUPROPION HCL ER (XL) 150MG [Suspect]
     Indication: DEPRESSION
     Dosage: 1 PILL
     Route: 048

REACTIONS (1)
  - Anger [None]
